FAERS Safety Report 18544349 (Version 1)
Quarter: 2020Q4

REPORT INFORMATION
  Report Type: Spontaneous
  Country: GB (occurrence: GB)
  Receive Date: 20201125
  Receipt Date: 20201125
  Transmission Date: 20210114
  Serious: Yes (Other)
  Sender: FDA-Public Use
  Company Number: GB-TEVA-2020-GB-1850697

PATIENT
  Age: 62 Year
  Sex: Female
  Weight: 60.77 kg

DRUGS (2)
  1. FLUCLOXACILLIN [Concomitant]
     Active Substance: FLUCLOXACILLIN
     Indication: WOUND INFECTION
     Route: 048
     Dates: start: 20201016, end: 20201017
  2. CLARITHROMYCIN. [Suspect]
     Active Substance: CLARITHROMYCIN
     Indication: POSTOPERATIVE WOUND INFECTION
     Dosage: 250 MG
     Route: 048
     Dates: start: 20201018, end: 20201019

REACTIONS (1)
  - Palpitations [Unknown]

NARRATIVE: CASE EVENT DATE: 20201018
